FAERS Safety Report 5372472-X (Version None)
Quarter: 2007Q2

REPORT INFORMATION
  Report Type: 
  Country: None (occurrence: None)
  Receive Date: 20070625
  Receipt Date: 20070618
  Transmission Date: 20071010
  Serious: Yes (Death)
  Sender: FDA-Public Use
  Company Number: 163-21880-07060934

PATIENT
  Age: 79 Year
  Sex: Male

DRUGS (2)
  1. REVLIMID [Suspect]
     Indication: MULTIPLE MYELOMA
     Dosage: 10 MG, 1 IN 1 D, ORAL
     Route: 048
     Dates: start: 20070314
  2. ALKERAN [Suspect]
     Indication: MULTIPLE MYELOMA
     Dosage: 2 MG, DAILY
     Dates: start: 20070314

REACTIONS (1)
  - MYOCARDIAL INFARCTION [None]
